FAERS Safety Report 12469835 (Version 1)
Quarter: 2016Q2

REPORT INFORMATION
  Report Type: Spontaneous
  Country: BR (occurrence: BR)
  Receive Date: 20160615
  Receipt Date: 20160615
  Transmission Date: 20160815
  Serious: Yes (Other)
  Sender: FDA-Public Use
  Company Number: BR-AMGEN-BRASP2016045314

PATIENT
  Age: 38 Year
  Sex: Female
  Weight: 47 kg

DRUGS (3)
  1. ENBREL [Suspect]
     Active Substance: ETANERCEPT
     Indication: RHEUMATOID ARTHRITIS
     Dosage: 50 MG, ONCE WEEK
     Route: 058
     Dates: start: 201203, end: 201501
  2. CALCIUM VITAMIN D [Concomitant]
     Active Substance: CALCIUM\VITAMIN D
     Dosage: 1 TABLET OF 600 MG, DAILY
     Dates: end: 201503
  3. ALENDRONATE SODIUM. [Concomitant]
     Active Substance: ALENDRONATE SODIUM
     Dosage: 1 TABLET 1X/WEEK
     Dates: end: 201503

REACTIONS (5)
  - Osteopenia [Unknown]
  - Headache [Unknown]
  - Hypersensitivity [Unknown]
  - Peripheral swelling [Unknown]
  - Complication of delivery [Unknown]

NARRATIVE: CASE EVENT DATE: 2015
